FAERS Safety Report 6334443-6 (Version None)
Quarter: 2009Q3

REPORT INFORMATION
  Report Type: 
  Country: None (occurrence: None)
  Receive Date: 20090827
  Receipt Date: 20090814
  Transmission Date: 20100115
  Serious: Yes (Other)
  Sender: FDA-Public Use
  Company Number: OPIR20090025

PATIENT
  Age: 31 Year
  Sex: Male
  Weight: 65.7716 kg

DRUGS (4)
  1. OPANA [Suspect]
     Indication: PAIN
     Dosage: 1/2 -2 TABLETS Q8H, PER ORAL
     Route: 048
     Dates: start: 20090501
  2. OXYCODONE LIQUID [Concomitant]
  3. RECTAL SUPPOSITORIES [Concomitant]
  4. SEIZURE MEDICATION [Concomitant]

REACTIONS (8)
  - DEPRESSION [None]
  - DIARRHOEA [None]
  - DRUG INEFFECTIVE [None]
  - HEADACHE [None]
  - INADEQUATE ANALGESIA [None]
  - NAUSEA [None]
  - VOMITING [None]
  - WITHDRAWAL SYNDROME [None]
